FAERS Safety Report 7013732-6 (Version None)
Quarter: 2010Q3

REPORT INFORMATION
  Report Type: 
  Country: None (occurrence: None)
  Receive Date: 20100924
  Receipt Date: 20100916
  Transmission Date: 20110219
  Serious: Yes (Life-Threatening, Other)
  Sender: FDA-Public Use
  Company Number: JP-PFIZER INC-2010094322

PATIENT
  Age: 77 Year
  Sex: Male
  Weight: 51.2 kg

DRUGS (5)
  1. SUNITINIB MALATE [Suspect]
     Indication: RENAL CELL CARCINOMA
     Dosage: 37.5 MG, 1X/DAY
     Dates: start: 20091015, end: 20091110
  2. ALESION [Concomitant]
     Dosage: 20 MG, 1X/DAY
     Route: 048
     Dates: start: 20091015
  3. GASTER OD [Concomitant]
     Dosage: 20 MG, 1X/DAY
     Dates: start: 20091015
  4. MS HOT PACK [Concomitant]
  5. POSTERISAN FORTE [Concomitant]
     Indication: HAEMORRHOIDS
     Dosage: UNK
     Dates: start: 20091025

REACTIONS (2)
  - INTERSTITIAL LUNG DISEASE [None]
  - LIPASE INCREASED [None]
